FAERS Safety Report 19004520 (Version 3)
Quarter: 2021Q2

REPORT INFORMATION
  Report Type: Spontaneous
  Country: JP (occurrence: JP)
  Receive Date: 20210313
  Receipt Date: 20210415
  Transmission Date: 20210717
  Serious: Yes (Other)
  Sender: FDA-Public Use
  Company Number: JP-ROCHE-2788536

PATIENT
  Age: 8 Decade
  Sex: Female

DRUGS (15)
  1. PREDONINE [Suspect]
     Active Substance: PREDNISOLONE
     Indication: STILL^S DISEASE
     Dosage: DOSAGE IS UNCERTAIN.
     Route: 065
     Dates: start: 20210105, end: 202101
  2. PREDONINE [Suspect]
     Active Substance: PREDNISOLONE
     Dosage: DOSAGE IS UNCERTAIN.
     Route: 065
     Dates: start: 20210210
  3. PREDONINE [Suspect]
     Active Substance: PREDNISOLONE
     Dosage: DOSE INTERVAL UNCERTAINTY
     Route: 065
     Dates: start: 20210306
  4. ACTEMRA [Suspect]
     Active Substance: TOCILIZUMAB
     Indication: STILL^S DISEASE
     Dosage: DATE OF LAST DOSE: 18/FEB/2021
     Route: 042
     Dates: end: 20210218
  5. PIARLE [Concomitant]
     Active Substance: LACTULOSE
     Indication: HEPATIC ENCEPHALOPATHY
     Dosage: DOSAGE IS UNCERTAIN.
     Route: 065
     Dates: start: 20210210
  6. LACTULOSE. [Concomitant]
     Active Substance: LACTULOSE
     Dosage: DOSAGE IS UNCERTAIN.
     Route: 048
  7. PROGRAF [Concomitant]
     Active Substance: TACROLIMUS
     Dosage: DOSE INTERVAL UNCERTAINTY
     Route: 065
     Dates: start: 20210222, end: 20210224
  8. OMEPRAZOLE. [Concomitant]
     Active Substance: OMEPRAZOLE
     Dosage: DOSAGE IS UNCERTAIN.
     Route: 065
  9. DENOSINE (JAPAN) [Concomitant]
     Active Substance: GANCICLOVIR
     Indication: CYTOMEGALOVIRUS INFECTION
     Dosage: DOSAGE IS UNCERTAIN.
     Route: 065
     Dates: start: 20210210, end: 20210226
  10. NEXIUM [Concomitant]
     Active Substance: ESOMEPRAZOLE MAGNESIUM
     Dosage: DOSAGE IS UNCERTAIN.
     Route: 065
  11. MORIHEPAMIN [Concomitant]
     Dosage: DOSAGE IS UNCERTAIN.
     Route: 065
  12. PREDONINE [Suspect]
     Active Substance: PREDNISOLONE
     Dosage: DOSAGE IS UNCERTAIN.
     Route: 065
     Dates: start: 202101, end: 2021
  13. PREDONINE [Suspect]
     Active Substance: PREDNISOLONE
     Dosage: DOSE INTERVAL UNCERTAINTY
     Route: 065
     Dates: start: 20210313
  14. PREDONINE [Suspect]
     Active Substance: PREDNISOLONE
     Dosage: DOSE INTERVAL UNCERTAINTY
     Route: 065
     Dates: start: 20210320
  15. PREDONINE [Suspect]
     Active Substance: PREDNISOLONE
     Dosage: DOSE INTERVAL UNCERTAINTY
     Route: 065
     Dates: start: 20210222

REACTIONS (4)
  - Altered state of consciousness [Unknown]
  - C-reactive protein increased [Unknown]
  - Enterocolitis [Unknown]
  - Diverticular perforation [Recovered/Resolved]

NARRATIVE: CASE EVENT DATE: 20210225
